FAERS Safety Report 15314616 (Version 7)
Quarter: 2022Q3

REPORT INFORMATION
  Report Type: Report from Study
  Country: CN (occurrence: None)
  Receive Date: 20180824
  Receipt Date: 20220711
  Transmission Date: 20221027
  Serious: Yes (Hospitalization)
  Sender: FDA-Public Use
  Company Number: CN-ROCHE-2173039

PATIENT
  Age: 64 Year
  Sex: Female
  Weight: 59 kg

DRUGS (14)
  1. ATEZOLIZUMAB [Suspect]
     Active Substance: ATEZOLIZUMAB
     Indication: Ovarian cancer
     Dosage: MOST RECENT DOSE (1200 MG) OF BLINDED ATEZOLIZUMAB: 08/AUG/2018
     Route: 042
     Dates: start: 20180522
  2. BEVACIZUMAB [Suspect]
     Active Substance: BEVACIZUMAB
     Indication: Ovarian cancer
     Dosage: MOST RECENT DOSE OF BEVACIZUMAB (900 MG ONCE PER 3 WEEKS): 08/AUG/2018
     Route: 042
     Dates: start: 20180627
  3. PACLITAXEL [Suspect]
     Active Substance: PACLITAXEL
     Indication: Ovarian cancer
     Dosage: MOST RECENT DOSE OF PACLITAXEL (269 MG ONCE PER 3 WEEKS): 08/AUG/2018
     Route: 042
     Dates: start: 20180522
  4. CARBOPLATIN [Suspect]
     Active Substance: CARBOPLATIN
     Indication: Ovarian cancer
     Dosage: AT A DOSE TO ACHIEVE A TARGET AREA UNDER THE CURVE (AUC) OF 6 MILLIGRAMS PER MILLILITER*MINUTE (MG/M
     Route: 042
     Dates: start: 20180522
  5. DEXAMETHASONE [Concomitant]
     Active Substance: DEXAMETHASONE
     Indication: Allergy prophylaxis
     Route: 048
     Dates: start: 20180718, end: 20180718
  6. DEXAMETHASONE [Concomitant]
     Active Substance: DEXAMETHASONE
     Dosage: PREVENT ALLERGY
     Route: 048
     Dates: start: 20180808, end: 20180808
  7. CIMETIDINE [Concomitant]
     Active Substance: CIMETIDINE
     Dates: start: 20180718, end: 20180718
  8. CIMETIDINE [Concomitant]
     Active Substance: CIMETIDINE
     Dosage: PROTECT STOMACH
     Dates: start: 20180808, end: 20180808
  9. PALONOSETRON HYDROCHLORIDE [Concomitant]
     Active Substance: PALONOSETRON HYDROCHLORIDE
     Indication: Prophylaxis of nausea and vomiting
     Dates: start: 20180718, end: 20180718
  10. PALONOSETRON HYDROCHLORIDE [Concomitant]
     Active Substance: PALONOSETRON HYDROCHLORIDE
     Dates: start: 20180808, end: 20180808
  11. PROMETHAZINE HYDROCHLORIDE [Concomitant]
     Active Substance: PROMETHAZINE HYDROCHLORIDE
     Indication: Allergy prophylaxis
     Dates: start: 20180718, end: 20180718
  12. PROMETHAZINE HYDROCHLORIDE [Concomitant]
     Active Substance: PROMETHAZINE HYDROCHLORIDE
     Dates: start: 20180808, end: 20180808
  13. HEPARIN SODIUM [Concomitant]
     Active Substance: HEPARIN SODIUM
     Dates: start: 20180718, end: 20180719
  14. RECOMBINANT HUMAN INTERLEUKIN-11 (UNK INGREDIENTS) [Concomitant]
     Indication: Anaemia
     Dates: start: 20180814, end: 20180817

REACTIONS (1)
  - Neutropenia [Recovered/Resolved]

NARRATIVE: CASE EVENT DATE: 20180814
